FAERS Safety Report 25461631 (Version 3)
Quarter: 2025Q4

REPORT INFORMATION
  Report Type: Report from Study
  Country: US (occurrence: None)
  Receive Date: 20250620
  Receipt Date: 20251110
  Transmission Date: 20260118
  Serious: Yes (Other)
  Sender: UCB
  Company Number: US-UCBSA-2025034061

PATIENT
  Age: 32 Year

DRUGS (6)
  1. BIMEKIZUMAB [Suspect]
     Active Substance: BIMEKIZUMAB
     Indication: Hidradenitis
     Dosage: 320 MILLIGRAM, EV 2 WEEKS(QOW)
  2. BIMEKIZUMAB [Suspect]
     Active Substance: BIMEKIZUMAB
     Dosage: 320 MILLIGRAM, EV 4 WEEKS
  3. GLIPIZIDE [Concomitant]
     Active Substance: GLIPIZIDE
     Indication: Glucose tolerance impaired
     Dosage: ONCE DAILY
  4. ATORVASTATIN [Concomitant]
     Active Substance: ATORVASTATIN
     Indication: Blood cholesterol
     Dosage: 40 MILLIGRAM, ONCE DAILY (QD)
  5. METFORMIN [Concomitant]
     Active Substance: METFORMIN HYDROCHLORIDE
     Indication: Blood glucose increased
     Dosage: 500 MILLIGRAM, ONCE DAILY (QD)
  6. OMEPRAZOLE [Concomitant]
     Active Substance: OMEPRAZOLE
     Indication: Gastrooesophageal reflux disease
     Dosage: 40 MILLIGRAM, ONCE DAILY (QD)

REACTIONS (5)
  - Mass [Unknown]
  - Thoracic operation [Recovered/Resolved]
  - Skin operation [Recovering/Resolving]
  - Hidradenitis [Recovering/Resolving]
  - Product dose omission issue [Unknown]
